FAERS Safety Report 24699098 (Version 1)
Quarter: 2024Q4

REPORT INFORMATION
  Report Type: Spontaneous
  Country: GB (occurrence: GB)
  Receive Date: 20241205
  Receipt Date: 20241205
  Transmission Date: 20250115
  Serious: Yes (Other)
  Sender: TEVA
  Company Number: GB-TEVA-VS-3270133

PATIENT
  Age: 23 Year
  Sex: Female

DRUGS (2)
  1. ARIPIPRAZOLE [Suspect]
     Active Substance: ARIPIPRAZOLE
     Indication: Borderline personality disorder
     Route: 065
  2. ZUCLOPENTHIXOL [Suspect]
     Active Substance: ZUCLOPENTHIXOL
     Indication: Borderline personality disorder
     Route: 030

REACTIONS (2)
  - Hyperprolactinaemia [Unknown]
  - Therapy non-responder [Unknown]
